FAERS Safety Report 5455965-6 (Version None)
Quarter: 2007Q3

REPORT INFORMATION
  Report Type: 
  Country: None (occurrence: None)
  Receive Date: 20070914
  Receipt Date: 20070910
  Transmission Date: 20080115
  Serious: Yes (Other)
  Sender: FDA-Public Use
  Company Number: 2007330594

PATIENT
  Sex: Male

DRUGS (1)
  1. SUDAFED PE SINUS AND ALLERGY (PHENYLEPHRINE HYDROCHLORIDE, CHLORPHENAM [Suspect]
     Dosage: 9 TABLETS ONCE, ORAL
     Route: 048

REACTIONS (1)
  - DYSARTHRIA [None]
